FAERS Safety Report 5276078-2 (Version None)
Quarter: 2007Q1

REPORT INFORMATION
  Report Type: 
  Country: None (occurrence: None)
  Receive Date: 20070326
  Receipt Date: 20070313
  Transmission Date: 20070707
  Serious: Yes (Hospitalization)
  Sender: FDA-Public Use
  Company Number: PHBS2007JP04296

PATIENT
  Age: 55 Year
  Sex: Male

DRUGS (10)
  1. NEORAL [Suspect]
     Indication: RENAL TRANSPLANT
     Dosage: UNK, UNK
     Route: 048
     Dates: start: 20060516
  2. CELLCEPT [Suspect]
     Indication: RENAL TRANSPLANT
     Dosage: UNK, UNK
     Route: 048
     Dates: start: 20060509
  3. RITUXAN [Suspect]
     Indication: RENAL TRANSPLANT
     Dosage: 500 MG
     Route: 042
     Dates: start: 20060522, end: 20060522
  4. RITUXAN [Suspect]
     Dosage: 500 MG
     Route: 042
     Dates: start: 20060605, end: 20060605
  5. SIMULECT [Suspect]
     Indication: RENAL TRANSPLANT
     Dosage: 20 MG
     Route: 042
     Dates: start: 20060606, end: 20060606
  6. SIMULECT [Suspect]
     Dosage: 20 MG
     Route: 042
     Dates: start: 20060610, end: 20060610
  7. PREDNISOLONE [Suspect]
     Dosage: UNK, UNK
     Route: 048
     Dates: start: 20060509
  8. PLASMAPHERESIS [Concomitant]
     Dosage: 3 TIMES
  9. PLASMA EXCHANGE [Concomitant]
     Dates: start: 20060605, end: 20060605
  10. INSULIN [Concomitant]
     Indication: DIABETES MELLITUS NON-INSULIN-DEPENDENT

REACTIONS (3)
  - ANTIBODY TEST POSITIVE [None]
  - CYTOMEGALOVIRUS VIRAEMIA [None]
  - SPLENECTOMY [None]
